FAERS Safety Report 6960163-0 (Version None)
Quarter: 2010Q3

REPORT INFORMATION
  Report Type: 
  Country: None (occurrence: None)
  Receive Date: 20100901
  Receipt Date: 20100826
  Transmission Date: 20110219
  Serious: Yes (Death)
  Sender: FDA-Public Use
  Company Number: US-CELGENEUS-163-21880-10080444

PATIENT
  Sex: Female

DRUGS (2)
  1. REVLIMID [Suspect]
     Indication: MULTIPLE MYELOMA
     Route: 048
     Dates: start: 20100219, end: 20100101
  2. REVLIMID [Suspect]
     Route: 048
     Dates: start: 20100401, end: 20100101

REACTIONS (8)
  - BLOOD COUNT ABNORMAL [None]
  - CONSTIPATION [None]
  - DISEASE COMPLICATION [None]
  - FATIGUE [None]
  - MALIGNANT NEOPLASM PROGRESSION [None]
  - MULTIPLE MYELOMA [None]
  - OEDEMA PERIPHERAL [None]
  - URINARY TRACT INFECTION [None]
